FAERS Safety Report 5322873-0 (Version None)
Quarter: 2007Q2

REPORT INFORMATION
  Report Type: 
  Country: None (occurrence: None)
  Receive Date: 20070511
  Receipt Date: 20070501
  Transmission Date: 20071010
  Serious: Yes (Other)
  Sender: FDA-Public Use
  Company Number: GB-PFIZER INC-2007036156

PATIENT
  Sex: Female

DRUGS (2)
  1. NEURONTIN [Suspect]
  2. CETIRIZINE HCL [Interacting]
     Indication: SEASONAL ALLERGY

REACTIONS (3)
  - AMNESIA [None]
  - COGNITIVE DISORDER [None]
  - DRUG INTERACTION [None]
